FAERS Safety Report 8323073 (Version 5)
Quarter: 2013Q4

REPORT INFORMATION
  Report Type: Report from Study
  Country: CA (occurrence: CA)
  Receive Date: 20120105
  Receipt Date: 20131009
  Transmission Date: 20140711
  Serious: Yes (Other)
  Sender: FDA-Public Use
  Company Number: CA-ROCHE-1006887

PATIENT
  Age: 66 Year
  Sex: Female
  Weight: 70.3 kg

DRUGS (13)
  1. RITUXAN [Suspect]
     Indication: RHEUMATOID ARTHRITIS
     Dosage: DAY 1 + 15
     Route: 042
     Dates: start: 20110301
  2. RITUXAN [Suspect]
     Route: 042
     Dates: start: 20111018
  3. RITUXAN [Suspect]
     Route: 042
     Dates: start: 20111207
  4. NORVASC [Concomitant]
     Route: 065
  5. AVAPRO [Concomitant]
     Route: 065
  6. PREVACID [Concomitant]
     Route: 065
  7. URSO [Concomitant]
     Route: 065
  8. MEDROL [Concomitant]
     Route: 065
  9. ACTONEL [Concomitant]
     Route: 065
  10. DIPHENHYDRAMINE HCL [Concomitant]
     Indication: PREMEDICATION
     Route: 048
     Dates: start: 20110301, end: 20111018
  11. ACETAMINOPHEN [Concomitant]
     Indication: PREMEDICATION
     Route: 048
     Dates: start: 20110301, end: 20111018
  12. METHYLPREDNISOLONE [Concomitant]
     Indication: PREMEDICATION
     Route: 042
     Dates: start: 20110301, end: 20111018
  13. HEPTOVIR [Concomitant]

REACTIONS (3)
  - Hepatitis B [Recovering/Resolving]
  - Blood pressure increased [Unknown]
  - Lower respiratory tract infection [Not Recovered/Not Resolved]
